FAERS Safety Report 4582757-2 (Version None)
Quarter: 2005Q1

REPORT INFORMATION
  Report Type: 
  Country: None (occurrence: None)
  Receive Date: 20050121
  Receipt Date: 20041208
  Transmission Date: 20050727
  Serious: Yes (Other)
  Sender: FDA-Public Use
  Company Number: 2004112444

PATIENT
  Age: 29 Year
  Sex: Female
  Weight: 56.6996 kg

DRUGS (2)
  1. RELPAX [Suspect]
     Indication: MIGRAINE
     Dosage: 40 MG (40 MG,1 TOTAL),ORAL
     Route: 048
     Dates: start: 20041124, end: 20041124
  2. PETIBELLE FILMTABLETTEN (DROSPIRENONE, ETHINYLESTRADIOL) [Concomitant]

REACTIONS (4)
  - DRUG INEFFECTIVE [None]
  - DYSKINESIA [None]
  - MUSCLE TIGHTNESS [None]
  - PARAESTHESIA ORAL [None]
